FAERS Safety Report 7442721-2 (Version None)
Quarter: 2011Q2

REPORT INFORMATION
  Report Type: 
  Country: None (occurrence: None)
  Receive Date: 20110428
  Receipt Date: 20101208
  Transmission Date: 20111010
  Serious: Yes (Other)
  Sender: FDA-Public Use
  Company Number: US-BAYER-201039823NA

PATIENT
  Sex: Female
  Weight: 125 kg

DRUGS (9)
  1. YASMIN [Suspect]
     Indication: POLYCYSTIC OVARIES
     Dosage: UNK
     Dates: start: 20060802, end: 20080321
  2. AZITHROMYCIN [Concomitant]
     Dosage: UNK
     Dates: start: 20080107
  3. DROSPIRENONE AND ETHINYL ESTRADIOL [Suspect]
     Indication: ACNE
  4. ALBUTEROL SULFATE [Concomitant]
     Dosage: UNK
     Dates: start: 20080107
  5. YAZ [Suspect]
     Indication: ACNE
  6. NSAID'S [Concomitant]
     Indication: PAIN
     Dosage: UNK UNK, PRN
  7. LEVOTHYROXINE SODIUM [Concomitant]
     Indication: HYPOTHYROIDISM
     Dosage: 100 ?G, QD
     Dates: start: 20040826
  8. YASMIN [Suspect]
     Indication: MENORRHAGIA
  9. SIMVASTATIN [Concomitant]
     Indication: HYPERCHOLESTEROLAEMIA
     Dosage: 10 MG, QD
     Dates: start: 20061120, end: 20090627

REACTIONS (6)
  - CHEST DISCOMFORT [None]
  - INJURY [None]
  - DYSPNOEA [None]
  - PULMONARY EMBOLISM [None]
  - CHEST PAIN [None]
  - DEPRESSION [None]
